FAERS Safety Report 8234112-1 (Version None)
Quarter: 2012Q1

REPORT INFORMATION
  Report Type: 
  Country: None (occurrence: None)
  Receive Date: 20120326
  Receipt Date: 20120326
  Transmission Date: 20120608
  Serious: Yes (Hospitalization)
  Sender: FDA-Public Use
  Company Number: None

PATIENT
  Age: 70 Year
  Sex: Female

DRUGS (24)
  1. PIPERACILLIN AND TAZOBACTAM [Suspect]
     Indication: PNEUMONIA
     Dosage: 4.5 GRAM
     Route: 042
     Dates: start: 20120317, end: 20120324
  2. WARFARIN SODIUM [Concomitant]
  3. FERROUS SULFATE TAB [Concomitant]
  4. AMITRIPTYLINE HCL [Concomitant]
  5. NYSTATIN [Concomitant]
  6. DILTIAZEM HCL [Concomitant]
  7. SOLU-MEDROL [Concomitant]
  8. SERTRALINE HYDROCHLORIDE [Concomitant]
  9. LIDOCAINE [Concomitant]
  10. PANTOPRAZOLE [Concomitant]
  11. VANCOMYCIN [Concomitant]
  12. FUROSEMIDE [Concomitant]
  13. AMBIEN [Concomitant]
  14. OXYCONTIN [Concomitant]
  15. XOPENEX [Concomitant]
  16. CRESTOR [Concomitant]
  17. SENNA [Concomitant]
  18. SINGULAIR [Concomitant]
  19. PERCOCET [Concomitant]
  20. XANAX [Concomitant]
  21. LISINOPRIL [Concomitant]
  22. ADVAIR DISKUS 100/50 [Concomitant]
  23. PREDNISONE [Concomitant]
  24. AZITHROMYCIN [Concomitant]

REACTIONS (3)
  - HAEMOLYTIC ANAEMIA [None]
  - TROPONIN INCREASED [None]
  - SUPRAVENTRICULAR TACHYCARDIA [None]
